FAERS Safety Report 4710998-X (Version None)
Quarter: 2005Q3

REPORT INFORMATION
  Report Type: 
  Country: None (occurrence: None)
  Receive Date: 20050708
  Receipt Date: 20050627
  Transmission Date: 20060218
  Serious: Yes (Hospitalization)
  Sender: FDA-Public Use
  Company Number: GXKR2005FR01288

PATIENT
  Age: 54 Year
  Sex: Male

DRUGS (7)
  1. RIMACTANE [Suspect]
     Indication: STAPHYLOCOCCAL INFECTION
     Dosage: ORAL
     Route: 048
     Dates: start: 20050523, end: 20050531
  2. RIFAMPICIN [Suspect]
     Dosage: INTRAVENOUS
     Route: 042
     Dates: start: 20050518, end: 20050523
  3. RIFAMPICIN [Suspect]
     Indication: STAPHYLOCOCCAL INFECTION
     Dosage: 330MG, TID, ORAL
     Route: 048
     Dates: start: 20050429, end: 20050514
  4. BACTRIM [Concomitant]
  5. FOLIC ACID [Concomitant]
  6. VANCOMYCIN [Concomitant]
  7. FUCIDINE CAP [Concomitant]

REACTIONS (6)
  - CHILLS [None]
  - LEUKOPENIA [None]
  - NEUTROPENIA [None]
  - PYREXIA [None]
  - RASH ERYTHEMATOUS [None]
  - RASH MACULAR [None]
